FAERS Safety Report 24991328 (Version 1)
Quarter: 2025Q1

REPORT INFORMATION
  Report Type: Spontaneous
  Country: MX (occurrence: MX)
  Receive Date: 20250220
  Receipt Date: 20250220
  Transmission Date: 20250409
  Serious: Yes (Hospitalization, Other)
  Sender: STRIDES
  Company Number: MX-STRIDES ARCOLAB LIMITED-2025SP002232

PATIENT
  Age: 37 Year
  Sex: Female

DRUGS (1)
  1. DOXYCYCLINE [Suspect]
     Active Substance: DOXYCYCLINE
     Indication: Rocky mountain spotted fever
     Route: 065

REACTIONS (5)
  - Stillbirth [Unknown]
  - Rocky mountain spotted fever [Unknown]
  - Condition aggravated [Unknown]
  - Drug ineffective [Unknown]
  - Maternal exposure during pregnancy [Unknown]
